FAERS Safety Report 8806410 (Version 2)
Quarter: 2012Q4

REPORT INFORMATION
  Report Type: 
  Country: US (occurrence: US)
  Receive Date: 20120925
  Receipt Date: 20121207
  Transmission Date: 20130627
  Serious: Yes (Death, Hospitalization, Other)
  Sender: FDA-Public Use
  Company Number: US-NOVOPROD-360086

PATIENT
  Age: 63 Year
  Sex: Female
  Weight: 96.15 kg

DRUGS (2)
  1. VICTOZA [Suspect]
     Indication: TYPE 2 DIABETES MELLITUS
     Dosage: 0.6 mg, qd
     Route: 058
     Dates: start: 20111216
  2. VICTOZA [Suspect]
     Dosage: UNK
     Route: 058

REACTIONS (4)
  - Endocarditis bacterial [Fatal]
  - Septic embolus [Fatal]
  - Calculus ureteric [Unknown]
  - Staphylococcal abscess [Unknown]
